FAERS Safety Report 23150750 (Version 2)
Quarter: 2023Q4

REPORT INFORMATION
  Report Type: Spontaneous
  Country: TH (occurrence: TH)
  Receive Date: 20231106
  Receipt Date: 20231205
  Transmission Date: 20240110
  Serious: No
  Sender: FDA-Public Use
  Company Number: TH-SCALL-2023-TH-067910

PATIENT
  Sex: Male

DRUGS (1)
  1. DUTASTERIDE [Suspect]
     Active Substance: DUTASTERIDE
     Dosage: 0.5 MG
     Route: 065

REACTIONS (5)
  - Oral discomfort [Unknown]
  - Lip pain [Unknown]
  - Product taste abnormal [Unknown]
  - Product dose omission issue [Unknown]
  - Product complaint [Unknown]
